FAERS Safety Report 9136855 (Version 1)
Quarter: 2013Q1

REPORT INFORMATION
  Report Type: Spontaneous
  Country: ES (occurrence: ES)
  Receive Date: 20130304
  Receipt Date: 20130304
  Transmission Date: 20140127
  Serious: Yes (Hospitalization)
  Sender: FDA-Public Use
  Company Number: ES-PFIZER INC-2013072952

PATIENT
  Age: 46 Year
  Sex: Female

DRUGS (4)
  1. CARDYL [Suspect]
     Indication: DYSLIPIDAEMIA
     Dosage: 20 MG, 1X/DAY
     Route: 048
     Dates: start: 20070228, end: 20120526
  2. GREEN TEA LEAF [Interacting]
     Indication: VOMITING
     Dosage: UNK
     Route: 048
     Dates: start: 20120524, end: 20120526
  3. COZAAR [Concomitant]
     Indication: HYPERTENSION
     Dosage: 25 MG, 1X/DAY
     Route: 048
     Dates: start: 20120228, end: 20120526
  4. RENITEC [Concomitant]
     Indication: HYPERTENSION
     Dosage: 10 MG, 1X/DAY
     Route: 048
     Dates: start: 20120228, end: 20120526

REACTIONS (7)
  - Drug interaction [Recovered/Resolved]
  - Hypokalaemia [Recovered/Resolved]
  - Renal failure acute [Recovered/Resolved]
  - Convulsion [Recovered/Resolved]
  - Rhabdomyolysis [Recovered/Resolved]
  - Hyponatraemia [Recovered/Resolved]
  - Hypocalcaemia [Recovered/Resolved]
